APPROVED DRUG PRODUCT: ACETIC ACID 0.25% IN PLASTIC CONTAINER
Active Ingredient: ACETIC ACID, GLACIAL
Strength: 250MG/100ML
Dosage Form/Route: SOLUTION;IRRIGATION, URETHRAL
Application: N017656 | Product #001 | TE Code: AT
Applicant: OTSUKA ICU MEDICAL LLC
Approved: Approved Prior to Jan 1, 1982 | RLD: Yes | RS: Yes | Type: RX